FAERS Safety Report 7325876-X (Version None)
Quarter: 2011Q1

REPORT INFORMATION
  Report Type: 
  Country: None (occurrence: None)
  Receive Date: 20110302
  Receipt Date: 20110217
  Transmission Date: 20110831
  Serious: Yes (Other)
  Sender: FDA-Public Use
  Company Number: PHHY2011BE13119

PATIENT
  Sex: Male
  Weight: 59 kg

DRUGS (9)
  1. ESTRACYT [Concomitant]
  2. MEDROL [Concomitant]
     Dosage: 8 MG DAILY
     Dates: start: 20100801
  3. DECAPEPTYL [Concomitant]
  4. ZOMETA [Suspect]
     Indication: METASTASES TO BONE
     Dosage: 4 MG,
     Dates: start: 20060101, end: 20101108
  5. TAMSULOSIN [Concomitant]
     Dosage: 0.4 MG DAILY
  6. LOORTAN [Concomitant]
     Dosage: ONCE DAILY
  7. OMEPRAZOLE [Concomitant]
     Dosage: 20 MG DAILY
  8. TAXOTERE [Concomitant]
     Dosage: UNK
  9. CARDIOASPIRINE [Concomitant]
     Dosage: ONCE DAILY,

REACTIONS (9)
  - BONE DISORDER [None]
  - GINGIVAL INFECTION [None]
  - OSTEONECROSIS OF JAW [None]
  - GINGIVAL PAIN [None]
  - HYPERTENSION [None]
  - PROSTATIC SPECIFIC ANTIGEN INCREASED [None]
  - INFECTION [None]
  - CEREBELLAR ISCHAEMIA [None]
  - CONFUSIONAL STATE [None]
